FAERS Safety Report 17686281 (Version 2)
Quarter: 2020Q2

REPORT INFORMATION
  Report Type: Report from Study
  Country: US (occurrence: US)
  Receive Date: 20200420
  Receipt Date: 20200429
  Transmission Date: 20200714
  Serious: Yes (Other)
  Sender: FDA-Public Use
  Company Number: US-TAKEDA-2020TUS018941

PATIENT
  Sex: Female

DRUGS (2)
  1. VORTIOXETINE. [Suspect]
     Active Substance: VORTIOXETINE
     Dosage: UNK
     Route: 065
  2. VORTIOXETINE. [Suspect]
     Active Substance: VORTIOXETINE
     Indication: PRODUCT USED FOR UNKNOWN INDICATION
     Dosage: UNK
     Route: 065

REACTIONS (4)
  - Nausea [Unknown]
  - Malaise [Unknown]
  - Dysgeusia [Unknown]
  - Coronavirus test positive [Unknown]
